FAERS Safety Report 12639240 (Version 1)
Quarter: 2016Q3

REPORT INFORMATION
  Report Type: Spontaneous
  Country: US (occurrence: US)
  Receive Date: 20160810
  Receipt Date: 20160810
  Transmission Date: 20161109
  Serious: Yes (Hospitalization)
  Sender: FDA-Public Use
  Company Number: US-ZYDUS-011831

PATIENT
  Age: 84 Year
  Sex: Male
  Weight: 60 kg

DRUGS (16)
  1. VORICONAZOLE. [Suspect]
     Active Substance: VORICONAZOLE
     Indication: FUNGAL ABSCESS CENTRAL NERVOUS SYSTEM
     Dosage: 250 MG EVERY 12 HOURS (Q12H)
     Route: 048
  2. VORICONAZOLE. [Suspect]
     Active Substance: VORICONAZOLE
     Indication: FUNGAL ABSCESS CENTRAL NERVOUS SYSTEM
     Dosage: 200 MG EVERY 12 HOURS THEREAFTER
     Route: 048
  3. VORICONAZOLE. [Suspect]
     Active Substance: VORICONAZOLE
     Indication: FUNGAL ABSCESS CENTRAL NERVOUS SYSTEM
     Dosage: 250 MG EVERY 12 HOURS (Q12H)
     Route: 048
  4. VORICONAZOLE. [Suspect]
     Active Substance: VORICONAZOLE
     Indication: FUNGAL ABSCESS CENTRAL NERVOUS SYSTEM
     Dosage: 300 MG EVERY 12 HOURS (Q12H)
     Route: 048
  5. DEXAMETHASONE/DEXAMETHASONE ACETATE/DEXAMETHASONE DIPROPIONATE/DEXAMETHASONE ISONICOTINATE/DEXAMETHA [Suspect]
     Active Substance: DEXAMETHASONE\DEXAMETHASONE ACETATE\DEXAMETHASONE DIPROPIONATE\DEXAMETHASONE ISONICOTINATE\DEXAMETHASONE PHOSPHATE\DEXAMETHASONE SODIUM PHOSPHATE\DEXAMETHASONE TEBUTATE\DEXAMETHASONE VALERATE
     Indication: BRAIN OEDEMA
     Route: 048
  6. VORICONAZOLE. [Suspect]
     Active Substance: VORICONAZOLE
     Indication: FUNGAL ABSCESS CENTRAL NERVOUS SYSTEM
     Dosage: 4 MG/KG (250 MG) EVERY 12 HOURS (Q12H) FOR ONE WEEK
     Route: 042
  7. DEXAMETHASONE/DEXAMETHASONE ACETATE/DEXAMETHASONE DIPROPIONATE/DEXAMETHASONE ISONICOTINATE/DEXAMETHA [Suspect]
     Active Substance: DEXAMETHASONE\DEXAMETHASONE ACETATE\DEXAMETHASONE DIPROPIONATE\DEXAMETHASONE ISONICOTINATE\DEXAMETHASONE PHOSPHATE\DEXAMETHASONE SODIUM PHOSPHATE\DEXAMETHASONE TEBUTATE\DEXAMETHASONE VALERATE
     Indication: BRAIN OEDEMA
     Route: 048
  8. VORICONAZOLE. [Suspect]
     Active Substance: VORICONAZOLE
     Indication: FUNGAL ABSCESS CENTRAL NERVOUS SYSTEM
     Dosage: 250 MG EVERY 12 HOURS (Q12H)
     Route: 042
  9. VORICONAZOLE. [Suspect]
     Active Substance: VORICONAZOLE
     Indication: FUNGAL ABSCESS CENTRAL NERVOUS SYSTEM
     Dosage: 300 MG) EVERY 12 HOURS (Q12H)
     Route: 042
  10. CEFEPIME [Concomitant]
     Active Substance: CEFEPIME HYDROCHLORIDE
     Indication: PRODUCT USED FOR UNKNOWN INDICATION
     Route: 065
  11. VORICONAZOLE. [Suspect]
     Active Substance: VORICONAZOLE
     Indication: FUNGAL ABSCESS CENTRAL NERVOUS SYSTEM
     Dosage: 6 MG/KG (400 MG) EVERY 12 HOURS (Q12H) 9 2 DOSES
     Route: 042
  12. DEXAMETHASONE. [Interacting]
     Active Substance: DEXAMETHASONE
     Indication: BRAIN OEDEMA
     Route: 048
  13. VANCOMYCIN [Concomitant]
     Active Substance: VANCOMYCIN
     Indication: PRODUCT USED FOR UNKNOWN INDICATION
     Route: 065
  14. METRONIDAZOLE. [Concomitant]
     Active Substance: METRONIDAZOLE
     Indication: PRODUCT USED FOR UNKNOWN INDICATION
     Route: 065
  15. DEXAMETHASONE/DEXAMETHASONE ACETATE/DEXAMETHASONE DIPROPIONATE/DEXAMETHASONE ISONICOTINATE/DEXAMETHA [Suspect]
     Active Substance: DEXAMETHASONE\DEXAMETHASONE ACETATE\DEXAMETHASONE DIPROPIONATE\DEXAMETHASONE ISONICOTINATE\DEXAMETHASONE PHOSPHATE\DEXAMETHASONE SODIUM PHOSPHATE\DEXAMETHASONE TEBUTATE\DEXAMETHASONE VALERATE
     Indication: BRAIN OEDEMA
     Route: 048
  16. DEXAMETHASONE/DEXAMETHASONE ACETATE/DEXAMETHASONE DIPROPIONATE/DEXAMETHASONE ISONICOTINATE/DEXAMETHA [Suspect]
     Active Substance: DEXAMETHASONE\DEXAMETHASONE ACETATE\DEXAMETHASONE DIPROPIONATE\DEXAMETHASONE ISONICOTINATE\DEXAMETHASONE PHOSPHATE\DEXAMETHASONE SODIUM PHOSPHATE\DEXAMETHASONE TEBUTATE\DEXAMETHASONE VALERATE
     Indication: BRAIN OEDEMA
     Route: 048

REACTIONS (5)
  - Drug interaction [Unknown]
  - Hypophagia [Unknown]
  - Cognitive disorder [Recovering/Resolving]
  - Drug level below therapeutic [Recovered/Resolved]
  - Disease progression [Unknown]
